FAERS Safety Report 8332829-1 (Version None)
Quarter: 2012Q2

REPORT INFORMATION
  Report Type: 
  Country: None (occurrence: None)
  Receive Date: 20120503
  Receipt Date: 20120427
  Transmission Date: 20120825
  Serious: Yes (Hospitalization)
  Sender: FDA-Public Use
  Company Number: US-BAYER-2011-049480

PATIENT
  Age: 24 Year
  Sex: Female
  Weight: 58.957 kg

DRUGS (2)
  1. YAZ [Suspect]
     Indication: CONTRACEPTION
  2. YASMIN [Suspect]
     Indication: CONTRACEPTION
     Dosage: UNK
     Dates: start: 20090324, end: 20090623

REACTIONS (10)
  - INJURY [None]
  - FEAR [None]
  - DIZZINESS [None]
  - DROOLING [None]
  - CEREBROVASCULAR ACCIDENT [None]
  - VIITH NERVE PARALYSIS [None]
  - TRANSIENT ISCHAEMIC ATTACK [None]
  - PAIN [None]
  - DYSARTHRIA [None]
  - APHASIA [None]
